FAERS Safety Report 13834924 (Version 7)
Quarter: 2022Q3

REPORT INFORMATION
  Report Type: Report from Study
  Country: CA (occurrence: CA)
  Receive Date: 20170804
  Receipt Date: 20220707
  Transmission Date: 20221027
  Serious: Yes (Other)
  Sender: FDA-Public Use
  Company Number: CA-GLAXOSMITHKLINE-CA2017GSK116031

PATIENT

DRUGS (10)
  1. FLUTICASONE PROPIONATE [Suspect]
     Active Substance: FLUTICASONE PROPIONATE
     Indication: Asthma
     Dosage: 250 UG, BID
  2. ADVAIR HFA [Suspect]
     Active Substance: FLUTICASONE PROPIONATE\SALMETEROL XINAFOATE
     Indication: Asthma
     Dosage: 2 PUFF(S), BID
     Dates: start: 201607
  3. NUCALA [Suspect]
     Active Substance: MEPOLIZUMAB
     Indication: Asthma
     Dosage: 100 MG, Z, MONTHLY
     Route: 042
     Dates: start: 20170609
  4. NUCALA [Suspect]
     Active Substance: MEPOLIZUMAB
     Dosage: 100 MG, Z, MONTHLY
     Route: 058
     Dates: start: 20201023
  5. COMBIVENT [Suspect]
     Active Substance: ALBUTEROL SULFATE\IPRATROPIUM BROMIDE
     Indication: Asthma
     Dosage: UNK UNK, PRN
  6. PREDNISONE [Suspect]
     Active Substance: PREDNISONE
     Indication: Asthma
     Dosage: 40 MG, QD
  7. PREDNISONE [Suspect]
     Active Substance: PREDNISONE
     Dosage: 10 MG, QD
  8. PREDNISONE [Suspect]
     Active Substance: PREDNISONE
     Dosage: 40 MG, QD
  9. BISOPROLOL [Suspect]
     Active Substance: BISOPROLOL
     Indication: Product used for unknown indication
     Dosage: UNK
  10. SPIRIVA [Suspect]
     Active Substance: TIOTROPIUM BROMIDE MONOHYDRATE
     Indication: Asthma
     Dosage: 2 PUFF(S), BID

REACTIONS (13)
  - Aortic valve incompetence [Unknown]
  - Syncope [Unknown]
  - Forced expiratory volume decreased [Unknown]
  - Dyspnoea [Unknown]
  - Full blood count abnormal [Unknown]
  - Asthma [Unknown]
  - Fatigue [Unknown]
  - Vital functions abnormal [Unknown]
  - Abdominal distension [Unknown]
  - Ejection fraction decreased [Unknown]
  - Dyspnoea exertional [Unknown]
  - Therapeutic product effect incomplete [Unknown]
  - Loss of personal independence in daily activities [Unknown]

NARRATIVE: CASE EVENT DATE: 20161024
